FAERS Safety Report 8472621-0 (Version None)
Quarter: 2012Q2

REPORT INFORMATION
  Report Type: 
  Country: None (occurrence: None)
  Receive Date: 20120627
  Receipt Date: 20120410
  Transmission Date: 20120825
  Serious: No
  Sender: FDA-Public Use
  Company Number: US-AMGEN-USASP2012023173

PATIENT
  Age: 84 Year
  Sex: Male
  Weight: 71.655 kg

DRUGS (2)
  1. ARANESP [Concomitant]
     Indication: RENAL FAILURE CHRONIC
     Dosage: UNK
  2. PROCRIT [Suspect]
     Indication: RENAL FAILURE CHRONIC
     Dosage: 10000 IU, Q2WK
     Dates: start: 20120326

REACTIONS (4)
  - EXPIRED DRUG ADMINISTERED [None]
  - SERUM FERRITIN DECREASED [None]
  - HAEMOGLOBIN DECREASED [None]
  - HAEMORRHAGE [None]
